FAERS Safety Report 26009770 (Version 1)
Quarter: 2025Q4

REPORT INFORMATION
  Report Type: Report from Study
  Country: US (occurrence: None)
  Receive Date: 20251107
  Receipt Date: 20251107
  Transmission Date: 20260117
  Serious: Yes (Hospitalization)
  Sender: UCB
  Company Number: US-UCBSA-2025068633

PATIENT

DRUGS (16)
  1. CERTOLIZUMAB PEGOL [Suspect]
     Active Substance: CERTOLIZUMAB PEGOL
     Indication: Psoriatic arthropathy
     Dosage: 200 MILLIGRAM, EV 2 WEEKS(QOW)
  2. ALPRAZOLAM [Concomitant]
     Active Substance: ALPRAZOLAM
     Indication: Anxiety
     Dosage: 0.5 DOSAGE FORM, ONCE DAILY (QD)
  3. AMOXICILLIN [Concomitant]
     Active Substance: AMOXICILLIN
     Indication: Streptococcal infection
     Dosage: 4 DOSAGE FORM, EV 2 DAYS (QOD)
  4. CAFFEINE [Concomitant]
     Active Substance: CAFFEINE
     Indication: Product used for unknown indication
     Dosage: 1 SERVING EVERY 1 MONTH
  5. FIBER LAXATIVE/SUPPLEMEN T- NOS [Concomitant]
     Indication: Constipation
     Dosage: 2 PILLS EVERY 2 DAYS
  6. FIBER LAXATIVE/SUPPLEMEN T- NOS [Concomitant]
     Indication: Bowel movement irregularity
  7. GAS-X [Concomitant]
     Active Substance: DIMETHICONE
     Indication: Abdominal distension
     Dosage: 1 PILL EVERY 3 DAYS
  8. MAGNESIUM CITRATE [Concomitant]
     Active Substance: MAGNESIUM CITRATE
     Indication: Pain
     Dosage: 200 MILLIGRAM, ONCE DAILY (QD)
  9. MIRALAX [Concomitant]
     Active Substance: POLYETHYLENE GLYCOL 3350
     Indication: Gastrointestinal motility disorder
     Dosage: 1 SERVING EVERY 2 WEEKS
  10. PREDNISONE [Concomitant]
     Active Substance: PREDNISONE
     Indication: Condition aggravated
     Dosage: 3 PILL EVERY DAY
  11. STOOL SOFTENER NOS [Concomitant]
     Indication: Gastrointestinal motility disorder
     Dosage: 2 PILLS 2 EVERY DAY
  12. SULFASALAZINE [Concomitant]
     Active Substance: SULFASALAZINE
     Indication: Psoriatic arthropathy
     Dosage: 500 MILLIGRAM, 2X/DAY (BID)
  13. TREMFYA [Concomitant]
     Active Substance: GUSELKUMAB
     Indication: Psoriatic arthropathy
     Dosage: 1 SHOT 6 YEAR
  14. TYLENOL [Concomitant]
     Active Substance: ACETAMINOPHEN
     Indication: Pain
     Dosage: 2 PILLS 2 EVERY DAY
  15. TYLENOL [Concomitant]
     Active Substance: ACETAMINOPHEN
     Dosage: 1 PILL 6 EVERY DAY
  16. VITAMIN B6 [Concomitant]
     Active Substance: PYRIDOXINE HYDROCHLORIDE
     Indication: Nausea
     Dosage: 3 PILL 3 EVERY DAY

REACTIONS (2)
  - Torticollis [Unknown]
  - Maternal exposure during pregnancy [Unknown]
